FAERS Safety Report 11648099 (Version 3)
Quarter: 2015Q4

REPORT INFORMATION
  Report Type: Spontaneous
  Country: US (occurrence: US)
  Receive Date: 20151021
  Receipt Date: 20151127
  Transmission Date: 20160304
  Serious: No
  Sender: FDA-Public Use
  Company Number: US-BIOGENIDEC-2015BI141141

PATIENT
  Sex: Male

DRUGS (1)
  1. AVONEX [Suspect]
     Active Substance: INTERFERON BETA-1A
     Indication: MULTIPLE SCLEROSIS
     Route: 030
     Dates: start: 20150918

REACTIONS (3)
  - Procedural anxiety [Not Recovered/Not Resolved]
  - Drug ineffective [Not Recovered/Not Resolved]
  - Fear of injection [Unknown]
